FAERS Safety Report 8357497-4 (Version None)
Quarter: 2012Q2

REPORT INFORMATION
  Report Type: 
  Country: None (occurrence: None)
  Receive Date: 20120511
  Receipt Date: 20120427
  Transmission Date: 20120825
  Serious: Yes (Hospitalization)
  Sender: FDA-Public Use
  Company Number: FR-008281

PATIENT
  Age: 38 Year
  Sex: Female

DRUGS (2)
  1. TRIPTORELIN (DECAPEPTYL) 0.1 MG [Suspect]
     Indication: OVULATION INDUCTION
     Dosage: (0.1 MG INTRAMUSCULAR)
     Route: 030
     Dates: start: 20120101, end: 20120213
  2. MENOPUR [Suspect]
     Indication: OVULATION INDUCTION
     Dosage: (2 DF INTRAMUSCULAR)
     Route: 030
     Dates: start: 20120101, end: 20120213

REACTIONS (7)
  - NYSTAGMUS [None]
  - SPEECH DISORDER [None]
  - HYPOAESTHESIA [None]
  - VIITH NERVE PARALYSIS [None]
  - HYPOAESTHESIA ORAL [None]
  - DYSARTHRIA [None]
  - GAIT DISTURBANCE [None]
